FAERS Safety Report 9742936 (Version 2)
Quarter: 2014Q1

REPORT INFORMATION
  Report Type: Report from Study
  Country: US (occurrence: US)
  Receive Date: 20131210
  Receipt Date: 20140214
  Transmission Date: 20141002
  Serious: Yes (Hospitalization)
  Sender: FDA-Public Use
  Company Number: US-ABBVIE-13P-163-1175403-00

PATIENT
  Age: 43 Year
  Sex: Female
  Weight: 92.16 kg

DRUGS (13)
  1. HUMIRA [Suspect]
     Indication: CROHN^S DISEASE
     Dates: start: 201207
  2. HUMIRA [Suspect]
     Dates: start: 20131115
  3. LIPITOR [Concomitant]
     Indication: BLOOD CHOLESTEROL ABNORMAL
  4. RANITIDINE [Concomitant]
     Indication: GASTROOESOPHAGEAL REFLUX DISEASE
     Dosage: 1 IN THE MORNING, 1 IN THE EVENING
  5. PLAVIX [Concomitant]
     Indication: CORONARY ARTERIAL STENT INSERTION
     Dosage: 1 IN THE MORNING
  6. FOLIC ACID [Concomitant]
     Indication: CARDIAC DISORDER
  7. CARVEDILOL [Concomitant]
     Indication: BLOOD PRESSURE ABNORMAL
     Dosage: 1 IN THE MORNING, 1 IN THE EVENING
  8. CARDIZEM [Concomitant]
     Indication: CARDIAC DISORDER
     Dosage: 1 IN THE MORNING
  9. ASPIRIN [Concomitant]
     Indication: CARDIAC DISORDER
     Dosage: 1 IN THE MORNING
  10. VITAMIN B12 [Concomitant]
     Indication: VITAMIN SUPPLEMENTATION
  11. CRANBERRY FRUIT [Concomitant]
     Indication: SUPPLEMENTATION THERAPY
     Dosage: 1 IN THE MORNING
  12. TRAMADOL [Concomitant]
     Dates: end: 2012
  13. PREDNISONE [Concomitant]
     Dates: end: 2012

REACTIONS (1)
  - Small intestinal obstruction [Recovered/Resolved]
